FAERS Safety Report 12908144 (Version 1)
Quarter: 2016Q4

REPORT INFORMATION
  Report Type: Spontaneous
  Country: US (occurrence: US)
  Receive Date: 20161103
  Receipt Date: 20161103
  Transmission Date: 20170207
  Serious: Yes (Hospitalization)
  Sender: FDA-Public Use
  Company Number: US-MYLANLABS-2016M1046855

PATIENT

DRUGS (1)
  1. PHENYTOIN. [Suspect]
     Active Substance: PHENYTOIN
     Indication: TREMOR
     Dosage: 400 MG, TID
     Route: 065

REACTIONS (6)
  - Dizziness [Recovering/Resolving]
  - Somnolence [Recovering/Resolving]
  - Toxicity to various agents [Recovering/Resolving]
  - Ataxia [Recovering/Resolving]
  - Vomiting [Recovering/Resolving]
  - Nystagmus [Recovering/Resolving]
